FAERS Safety Report 7457385-1 (Version None)
Quarter: 2011Q2

REPORT INFORMATION
  Report Type: 
  Country: None (occurrence: None)
  Receive Date: 20110502
  Receipt Date: 20110502
  Transmission Date: 20111010
  Serious: No
  Sender: FDA-Public Use
  Company Number: None

PATIENT
  Age: 74 Year
  Sex: Female
  Weight: 72.5755 kg

DRUGS (2)
  1. LEVAQUIN [Suspect]
     Indication: PNEUMONIA
     Dates: start: 20110317, end: 20110318
  2. LEVAQUIN [Suspect]
     Indication: BRONCHIAL DISORDER
     Dates: start: 20110317, end: 20110318

REACTIONS (6)
  - HEADACHE [None]
  - ARTHRALGIA [None]
  - MYALGIA [None]
  - NECK PAIN [None]
  - PAIN IN EXTREMITY [None]
  - DYSPEPSIA [None]
